FAERS Safety Report 8164540-4 (Version None)
Quarter: 2012Q1

REPORT INFORMATION
  Report Type: 
  Country: None (occurrence: None)
  Receive Date: 20120225
  Receipt Date: 20120215
  Transmission Date: 20120608
  Serious: Yes (Congenital Anomaly, Other)
  Sender: FDA-Public Use
  Company Number: DE-ACCORD-012456

PATIENT

DRUGS (7)
  1. MYCOPHENOLATE MOFETIL [Suspect]
     Indication: SYSTEMIC LUPUS ERYTHEMATOSUS
     Route: 064
  2. ENALAPRIL MALEATE [Concomitant]
     Route: 064
  3. PREDNISONE [Concomitant]
     Route: 064
  4. AZATHIOPRINE [Concomitant]
     Route: 064
  5. HYDROXYCHLOROQUINE SULFATE [Concomitant]
     Route: 064
  6. ALENDRONATE SODIUM [Concomitant]
     Route: 064
  7. ACETYLSALICYLIC ACID SRT [Concomitant]
     Route: 064

REACTIONS (12)
  - MICROGNATHIA [None]
  - CONGENITAL ANOMALY [None]
  - MICROTIA [None]
  - CAMPTODACTYLY CONGENITAL [None]
  - CONGENITAL ARTERIAL MALFORMATION [None]
  - COLOBOMA [None]
  - OLFACTORY NERVE DISORDER [None]
  - HYPERTELORISM OF ORBIT [None]
  - OESOPHAGEAL ATRESIA [None]
  - FOETAL EXPOSURE TIMING UNSPECIFIED [None]
  - EXTERNAL AUDITORY CANAL ATRESIA [None]
  - BRACHYCEPHALY [None]
